FAERS Safety Report 24023074 (Version 2)
Quarter: 2024Q3

REPORT INFORMATION
  Report Type: Report from Study
  Country: TR (occurrence: TR)
  Receive Date: 20240627
  Receipt Date: 20240710
  Transmission Date: 20241017
  Serious: No
  Sender: ROCHE
  Company Number: TR-ROCHE-2997271

PATIENT
  Age: 53 Year
  Sex: Female
  Weight: 75.0 kg

DRUGS (17)
  1. ALECTINIB [Suspect]
     Active Substance: ALECTINIB
     Indication: Lung cancer metastatic
     Route: 048
     Dates: start: 20181119
  2. ALECTINIB [Suspect]
     Active Substance: ALECTINIB
     Route: 048
     Dates: start: 20210602
  3. IBUCOLD C [Concomitant]
     Dosage: NO
     Route: 048
     Dates: start: 20211122, end: 20211128
  4. FENIRAMIN [Concomitant]
     Dosage: NO
     Dates: start: 20220104, end: 20220104
  5. LEVOTHYROXINE SODIUM [Concomitant]
     Active Substance: LEVOTHYROXINE SODIUM
     Indication: Hypothyroidism
     Dosage: YES
     Route: 048
     Dates: start: 2002
  6. PARASETAMOL [Concomitant]
     Dosage: YES
     Route: 048
     Dates: start: 202103
  7. AVELOX [Concomitant]
     Active Substance: MOXIFLOXACIN HYDROCHLORIDE
     Route: 048
     Dates: start: 20220104, end: 20220109
  8. ALPRAZOLAM [Concomitant]
     Active Substance: ALPRAZOLAM
     Indication: Anxiety
     Route: 048
     Dates: start: 20220113
  9. IBUPROFEN [Concomitant]
     Active Substance: IBUPROFEN
     Route: 048
     Dates: start: 20220101, end: 20220103
  10. NAPROSYN CR [Concomitant]
     Indication: Osteoarthritis
     Route: 048
     Dates: start: 20220114, end: 20220124
  11. AMOKSISILIN [Concomitant]
     Indication: Upper respiratory tract infection
     Route: 048
     Dates: start: 20220119, end: 20220126
  12. LANSOPRAZOLE [Concomitant]
     Active Substance: LANSOPRAZOLE
     Dosage: PREVENTING ACID SECRETION FROM ACIDSECRETING?CELLS IN THE STOMACH
     Route: 048
     Dates: start: 20220114, end: 20220202
  13. FERRO-SANOL DUODENAL [Concomitant]
     Active Substance: FERROUS GLYCINE SULFATE
     Indication: Iron deficiency
     Route: 048
     Dates: start: 20231109
  14. D-COLEFOR [Concomitant]
     Route: 048
     Dates: start: 20231109, end: 20231123
  15. PANTO (TURKEY) [Concomitant]
     Route: 048
     Dates: start: 20231019, end: 20231102
  16. DEXKETOPROFEN [Concomitant]
     Active Substance: DEXKETOPROFEN
     Route: 048
     Dates: start: 20231019, end: 20231026
  17. QALYVIZ [Concomitant]
     Route: 048
     Dates: start: 20231018, end: 20231026

REACTIONS (1)
  - Iron deficiency [Not Recovered/Not Resolved]

NARRATIVE: CASE EVENT DATE: 20210701
